FAERS Safety Report 8479758-0 (Version None)
Quarter: 2012Q2

REPORT INFORMATION
  Report Type: 
  Country: None (occurrence: None)
  Receive Date: 20120629
  Receipt Date: 20120627
  Transmission Date: 20120825
  Serious: No
  Sender: FDA-Public Use
  Company Number: US-BAYER-2012-064408

PATIENT
  Age: 32 Year
  Sex: Female

DRUGS (1)
  1. BETASERON [Suspect]
     Indication: MULTIPLE SCLEROSIS

REACTIONS (4)
  - INFLUENZA LIKE ILLNESS [None]
  - PYREXIA [None]
  - CHILLS [None]
  - SUNBURN [None]
